FAERS Safety Report 9228470 (Version 4)
Quarter: 2013Q3

REPORT INFORMATION
  Report Type: Spontaneous
  Country: JP (occurrence: JP)
  Receive Date: 20130412
  Receipt Date: 20130711
  Transmission Date: 20140515
  Serious: Yes (Life-Threatening, Hospitalization)
  Sender: FDA-Public Use
  Company Number: JP-B.I. PHARMACEUTICALS,INC./RIDGEFIELD-2013-BI-09637NB

PATIENT
  Age: 78 Year
  Sex: Female
  Weight: 44 kg

DRUGS (12)
  1. MICOMBI COMBINATION [Suspect]
     Indication: HYPERTENSION
     Route: 048
     Dates: start: 20130227, end: 20130403
  2. MICARDIS [Suspect]
     Indication: HYPERTENSION
     Dosage: 40 MG
     Route: 048
     Dates: start: 20130212, end: 20130226
  3. SAIKO-KEISHI-TO [Suspect]
     Indication: HEADACHE
     Dosage: 2.5 G
     Route: 048
     Dates: start: 20130227, end: 20130403
  4. RENIVACE [Concomitant]
     Indication: HYPERTENSION
     Dosage: 5 MG
     Route: 048
  5. NIFESLOW [Concomitant]
     Dosage: 20 MG
     Route: 048
  6. NATRIX [Concomitant]
     Indication: HYPERTENSION
     Dosage: 0.5 MG
     Route: 048
     Dates: start: 20130201, end: 20130226
  7. RYOKEIJUTSUKANTO [Concomitant]
     Indication: DIZZINESS
     Dosage: 2.5 MG
     Route: 048
     Dates: start: 20130201, end: 20130226
  8. ASPARA-CA [Concomitant]
     Indication: MINERAL SUPPLEMENTATION
     Route: 048
  9. TOYOFAROL [Concomitant]
     Indication: MINERAL SUPPLEMENTATION
     Route: 048
  10. BONOTEO [Concomitant]
     Indication: OSTEOPOROSIS
     Dosage: 1 MG
     Route: 048
  11. KAKKONTO [Concomitant]
     Indication: HEADACHE
     Dosage: 2.5 MG
     Route: 048
     Dates: start: 20130227
  12. SEIBULE [Concomitant]
     Dosage: 25 MG
     Route: 048
     Dates: start: 20130327, end: 20130403

REACTIONS (2)
  - Interstitial lung disease [Recovered/Resolved]
  - Feeling abnormal [Unknown]
